FAERS Safety Report 18061430 (Version 1)
Quarter: 2020Q3

REPORT INFORMATION
  Report Type: Report from Study
  Country: LT (occurrence: LT)
  Receive Date: 20200723
  Receipt Date: 20200723
  Transmission Date: 20201103
  Serious: Yes (Hospitalization)
  Sender: FDA-Public Use
  Company Number: LT-CELGENEUS-LTU-20200703748

PATIENT
  Age: 68 Year
  Sex: Male

DRUGS (5)
  1. MYCOFENOLATE MOFETIL [Concomitant]
     Indication: PRODUCT USED FOR UNKNOWN INDICATION
     Dosage: DOSE NOT PROVIDED
     Route: 065
     Dates: start: 20200525
  2. VALACYCLOVIR [Concomitant]
     Active Substance: VALACYCLOVIR HYDROCHLORIDE
     Indication: PRODUCT USED FOR UNKNOWN INDICATION
     Dosage: DOSE NOT PROVIDED
     Route: 065
     Dates: start: 20200228
  3. PLACEBO [Suspect]
     Active Substance: UNSPECIFIED INGREDIENT
     Indication: ACUTE MYELOID LEUKAEMIA
     Route: 048
     Dates: start: 20200427, end: 20200713
  4. OMEPRAZOLE. [Concomitant]
     Active Substance: OMEPRAZOLE
     Indication: PRODUCT USED FOR UNKNOWN INDICATION
     Dosage: DOSE NOT PROVIDED
     Route: 065
     Dates: start: 20200423
  5. TRIMETOPRIM/SULFAMETHOXAZOLE [Concomitant]
     Indication: PRODUCT USED FOR UNKNOWN INDICATION
     Dosage: DOSE NOT PROVIDED
     Route: 065
     Dates: start: 20200228

REACTIONS (1)
  - Pneumonia fungal [Not Recovered/Not Resolved]

NARRATIVE: CASE EVENT DATE: 20200713
